FAERS Safety Report 14933420 (Version 1)
Quarter: 2018Q2

REPORT INFORMATION
  Report Type: Spontaneous
  Country: US (occurrence: US)
  Receive Date: 20180524
  Receipt Date: 20180524
  Transmission Date: 20180711
  Serious: Yes (Hospitalization, Other)
  Sender: FDA-Public Use
  Company Number: US-TEVA-791233USA

PATIENT
  Age: 67 Year
  Sex: Male
  Weight: 49.03 kg

DRUGS (16)
  1. METHOTREXATE. [Concomitant]
     Active Substance: METHOTREXATE
     Dates: start: 20141016, end: 20160606
  2. PF-06438179;INFLIXIMAB [Concomitant]
     Active Substance: INFLIXIMAB
     Route: 042
     Dates: start: 20150811, end: 20150811
  3. PF-06438179;INFLIXIMAB [Concomitant]
     Active Substance: INFLIXIMAB
     Route: 042
     Dates: start: 20151006, end: 20151006
  4. AMOXICILLIN. [Suspect]
     Active Substance: AMOXICILLIN
     Indication: HELICOBACTER INFECTION
     Dosage: 1000 MILLIGRAM DAILY;
     Route: 048
     Dates: start: 20160609, end: 20160611
  5. PF-06438179;INFLIXIMAB [Concomitant]
     Active Substance: INFLIXIMAB
     Route: 042
     Dates: start: 20160323, end: 20160323
  6. CLARITHROMYCIN. [Suspect]
     Active Substance: CLARITHROMYCIN
     Indication: HELICOBACTER INFECTION
     Dosage: 1000 MILLIGRAM DAILY;
     Route: 048
     Dates: start: 20160609, end: 20160611
  7. FOLIC ACID. [Concomitant]
     Active Substance: FOLIC ACID
     Dates: start: 2005
  8. ASPIRIN. [Concomitant]
     Active Substance: ASPIRIN
     Dates: start: 20150601
  9. PF-06438179;INFLIXIMAB [Concomitant]
     Active Substance: INFLIXIMAB
     Indication: RHEUMATOID ARTHRITIS
     Route: 042
     Dates: start: 20150630, end: 20150630
  10. TRAMADOL. [Concomitant]
     Active Substance: TRAMADOL
     Dates: start: 2014
  11. PREVACID [Concomitant]
     Active Substance: LANSOPRAZOLE
     Dates: start: 20150730
  12. PF-06438179;INFLIXIMAB [Concomitant]
     Active Substance: INFLIXIMAB
     Route: 042
     Dates: start: 20151201, end: 20151201
  13. PREDNISONE. [Concomitant]
     Active Substance: PREDNISONE
     Dates: start: 2005
  14. PF-06438179;INFLIXIMAB [Concomitant]
     Active Substance: INFLIXIMAB
     Route: 042
     Dates: start: 20150714, end: 20150714
  15. PF-06438179;INFLIXIMAB [Concomitant]
     Active Substance: INFLIXIMAB
     Route: 042
     Dates: start: 20160126, end: 20160126
  16. PF-06438179;INFLIXIMAB [Concomitant]
     Active Substance: INFLIXIMAB
     Route: 042
     Dates: start: 20160517, end: 20160517

REACTIONS (1)
  - Clostridium difficile infection [Recovered/Resolved]

NARRATIVE: CASE EVENT DATE: 20160623
